FAERS Safety Report 8564600 (Version 2)
Quarter: 2014Q3

REPORT INFORMATION
  Report Type: Report from Study
  Country: US (occurrence: US)
  Receive Date: 20120516
  Receipt Date: 20140703
  Transmission Date: 20150326
  Serious: Yes (Hospitalization)
  Sender: FDA-Public Use
  Company Number: US-ALEXION-A201101375

PATIENT

DRUGS (5)
  1. SOLIRIS [Suspect]
     Active Substance: ECULIZUMAB
     Indication: PAROXYSMAL NOCTURNAL HAEMOGLOBINURIA
     Dosage: UNK (9 CYCLES)
     Route: 042
     Dates: start: 20110524
  2. KLONOPIN [Concomitant]
     Active Substance: CLONAZEPAM
     Indication: PRODUCT USED FOR UNKNOWN INDICATION
     Dosage: 1MG, TID, PRN
     Route: 065
  3. PRILOSEC [Concomitant]
     Active Substance: OMEPRAZOLE MAGNESIUM
     Indication: PRODUCT USED FOR UNKNOWN INDICATION
     Dosage: 40 MG, QD
     Route: 065
  4. FOLIC ACID. [Concomitant]
     Active Substance: FOLIC ACID
     Indication: PRODUCT USED FOR UNKNOWN INDICATION
     Dosage: 1 MG, QD
     Route: 065
  5. LORTAB [Concomitant]
     Active Substance: ACETAMINOPHEN\HYDROCODONE BITARTRATE
     Indication: PRODUCT USED FOR UNKNOWN INDICATION
     Dosage: 7.5 UNK, PRN
     Route: 065

REACTIONS (9)
  - Pallor [Recovered/Resolved]
  - Aspartate aminotransferase increased [Recovering/Resolving]
  - Aplastic anaemia [Not Recovered/Not Resolved]
  - Pancytopenia [Recovering/Resolving]
  - Asthenia [Recovered/Resolved]
  - Blood alkaline phosphatase increased [Recovering/Resolving]
  - Chills [Recovered/Resolved]
  - Immunosuppressant drug level increased [Recovering/Resolving]
  - Iron overload [Unknown]

NARRATIVE: CASE EVENT DATE: 201108
